FAERS Safety Report 6674447-7 (Version None)
Quarter: 2010Q2

REPORT INFORMATION
  Report Type: 
  Country: None (occurrence: None)
  Receive Date: 20100409
  Receipt Date: 20100330
  Transmission Date: 20101027
  Serious: Yes (Hospitalization)
  Sender: FDA-Public Use
  Company Number: PHHY2009DE48774

PATIENT
  Sex: Male

DRUGS (15)
  1. RASILEZ [Suspect]
     Dosage: UNK
     Route: 048
     Dates: start: 20091201
  2. RASILEZ [Suspect]
     Dosage: 150 MG, PER DAY
     Route: 048
     Dates: start: 20100329
  3. RASILEZ [Suspect]
     Dosage: UNK
  4. ATACAND [Concomitant]
     Dosage: UNK
  5. FUROSEMID [Concomitant]
     Dosage: UNK
  6. CARVEDILOL [Concomitant]
     Dosage: UNK
  7. DOXAZOSIN [Concomitant]
     Dosage: UNK
  8. AMLODIPINE [Concomitant]
     Dosage: UNK
  9. MARCUMAR [Concomitant]
  10. VERAPAMIL [Concomitant]
     Dosage: UNK
  11. NOVONORM [Concomitant]
     Dosage: UNK
  12. DIGIMERCK [Concomitant]
     Dosage: UNK
  13. CLONIDINE [Concomitant]
     Dosage: UNK
  14. TORSEMIDE [Concomitant]
     Dosage: UNK
  15. ALLOPURINOL [Concomitant]
     Dosage: UNK

REACTIONS (5)
  - BLOOD PRESSURE SYSTOLIC INCREASED [None]
  - CONDITION AGGRAVATED [None]
  - FLUID RETENTION [None]
  - OEDEMA PERIPHERAL [None]
  - RENAL FAILURE ACUTE [None]
